FAERS Safety Report 19593233 (Version 1)
Quarter: 2021Q3

REPORT INFORMATION
  Report Type: Spontaneous
  Country: US (occurrence: US)
  Receive Date: 20210722
  Receipt Date: 20210722
  Transmission Date: 20211014
  Serious: Yes (Other)
  Sender: FDA-Public Use
  Company Number: NVSC2021US164181

PATIENT
  Age: 55 Year
  Sex: Female

DRUGS (2)
  1. RANITIDINE. [Suspect]
     Active Substance: RANITIDINE
     Indication: REFLUX LARYNGITIS
     Dosage: 300 MG, QD
     Route: 065
     Dates: start: 201501, end: 201901
  2. RANITIDINE. [Suspect]
     Active Substance: RANITIDINE
     Indication: REFLUX LARYNGITIS
     Dosage: 300 MG, QD
     Route: 065
     Dates: start: 201501, end: 201901

REACTIONS (2)
  - Product use in unapproved indication [Unknown]
  - Breast cancer stage III [Recovered/Resolved]

NARRATIVE: CASE EVENT DATE: 20191001
